FAERS Safety Report 5288079-9 (Version None)
Quarter: 2007Q1

REPORT INFORMATION
  Report Type: 
  Country: None (occurrence: None)
  Receive Date: 20070330
  Receipt Date: 20070320
  Transmission Date: 20070707
  Serious: Yes (Other)
  Sender: FDA-Public Use
  Company Number: 2006S1000073

PATIENT
  Age: 85 Year
  Sex: Male
  Weight: 84 kg

DRUGS (10)
  1. CUBICIN [Suspect]
     Indication: ARTHRITIS INFECTIVE
     Dosage: 375 MG; Q24H; IV
     Route: 042
     Dates: start: 20051214, end: 20060221
  2. CUBICIN [Suspect]
     Indication: STAPHYLOCOCCAL INFECTION
     Dosage: 375 MG; Q24H; IV
     Route: 042
     Dates: start: 20051214, end: 20060221
  3. SIMVASTATIN [Concomitant]
  4. TAMSULOSIN HCL [Concomitant]
  5. RIFAMPIN [Concomitant]
  6. GENTAMICIN [Concomitant]
  7. IRON [Concomitant]
  8. M.V.I. [Concomitant]
  9. NAPROXEN [Concomitant]
  10. ACETYLSALICYLIC ACID SRT [Concomitant]

REACTIONS (9)
  - ARTHRALGIA [None]
  - CRYPTOGENIC ORGANISING PNEUMONIA [None]
  - JOINT SWELLING [None]
  - MALAISE [None]
  - PULMONARY OEDEMA [None]
  - RASH [None]
  - STAPHYLOCOCCAL INFECTION [None]
  - URTICARIA [None]
  - WEIGHT DECREASED [None]
